FAERS Safety Report 16709254 (Version 2)
Quarter: 2019Q3

REPORT INFORMATION
  Report Type: Spontaneous
  Country: FR (occurrence: FR)
  Receive Date: 20190816
  Receipt Date: 20190905
  Transmission Date: 20191004
  Serious: Yes (Hospitalization)
  Sender: FDA-Public Use
  Company Number: PHHY2019FR188151

PATIENT
  Age: 45 Year
  Sex: Male

DRUGS (1)
  1. RITALINE [Suspect]
     Active Substance: METHYLPHENIDATE HYDROCHLORIDE
     Indication: PRODUCT USED FOR UNKNOWN INDICATION
     Dosage: UNK
     Route: 042

REACTIONS (4)
  - Drug use disorder [Not Recovered/Not Resolved]
  - Intervertebral discitis [Recovering/Resolving]
  - Abscess [Unknown]
  - Drug abuse [Unknown]
